FAERS Safety Report 13763253 (Version 1)
Quarter: 2017Q3

REPORT INFORMATION
  Report Type: Spontaneous
  Country: US (occurrence: US)
  Receive Date: 20170718
  Receipt Date: 20170718
  Transmission Date: 20171127
  Serious: Yes (Death, Life-Threatening, Hospitalization, Other)
  Sender: FDA-Public Use
  Company Number: None

PATIENT
  Age: 87 Year
  Sex: Female
  Weight: 65.83 kg

DRUGS (1)
  1. ABRAXANE [Suspect]
     Active Substance: PACLITAXEL
     Indication: CHEMOTHERAPY
     Dates: start: 20170427, end: 20170427

REACTIONS (6)
  - Fall [None]
  - Extra dose administered [None]
  - Asthenia [None]
  - Dysstasia [None]
  - Vomiting [None]
  - Peripheral swelling [None]

NARRATIVE: CASE EVENT DATE: 20170427
